FAERS Safety Report 4296602-6 (Version None)
Quarter: 2004Q1

REPORT INFORMATION
  Report Type: 
  Country: None (occurrence: None)
  Receive Date: 20040126
  Receipt Date: 20030826
  Transmission Date: 20041129
  Serious: No
  Sender: FDA-Public Use
  Company Number: USA030845404

PATIENT
  Age: 10 Year
  Sex: Male
  Weight: 45 kg

DRUGS (1)
  1. STRATTERA [Suspect]
     Indication: PSYCHOMOTOR HYPERACTIVITY
     Dosage: 40 MG/DAY

REACTIONS (3)
  - ABDOMINAL PAIN UPPER [None]
  - CHEST PAIN [None]
  - DECREASED APPETITE [None]
